FAERS Safety Report 5317004-7 (Version None)
Quarter: 2007Q1

REPORT INFORMATION
  Report Type: 
  Country: None (occurrence: None)
  Receive Date: 20070130
  Receipt Date: 20061207
  Transmission Date: 20070707
  Serious: No
  Sender: FDA-Public Use
  Company Number: 200619889US

PATIENT
  Sex: Male

DRUGS (1)
  1. KETEK [Suspect]
     Dosage: 1200 MG BID

REACTIONS (6)
  - ADVERSE EVENT [None]
  - DISEASE PROGRESSION [None]
  - HEPATOCELLULAR DAMAGE [None]
  - MEDICATION ERROR [None]
  - OVERDOSE [None]
  - SKIN DISCOLOURATION [None]
